FAERS Safety Report 7556947-0 (Version None)
Quarter: 2011Q2

REPORT INFORMATION
  Report Type: 
  Country: None (occurrence: None)
  Receive Date: 20110616
  Receipt Date: 20110616
  Transmission Date: 20111010
  Serious: Yes (Other)
  Sender: FDA-Public Use
  Company Number: None

PATIENT
  Age: 6 Year
  Sex: Male
  Weight: 31.3 kg

DRUGS (1)
  1. TESTOSTERONE [Suspect]
     Indication: HYPOGONADISM
     Dosage: TWICE A DAY TOP
     Route: 061

REACTIONS (6)
  - PENIS DISORDER [None]
  - BLOOD LUTEINISING HORMONE INCREASED [None]
  - PRECOCIOUS PUBERTY [None]
  - HAIR GROWTH ABNORMAL [None]
  - ACCIDENTAL EXPOSURE [None]
  - BLOOD TESTOSTERONE INCREASED [None]
